FAERS Safety Report 23295529 (Version 1)
Quarter: 2023Q4

REPORT INFORMATION
  Report Type: Spontaneous
  Country: US (occurrence: US)
  Receive Date: 20231214
  Receipt Date: 20231214
  Transmission Date: 20240110
  Serious: No
  Sender: FDA-Public Use
  Company Number: US-ALVOGEN-2023091890

PATIENT
  Sex: Female

DRUGS (1)
  1. FENTANYL [Suspect]
     Active Substance: FENTANYL\FENTANYL CITRATE
     Indication: Product used for unknown indication
     Dosage: EXPIRATION DATE: UU-JUN-2025?S/N: 050404188461?GTIN: 00347781427474?STRENGTH: 75MCG/HOUR

REACTIONS (3)
  - Withdrawal syndrome [Unknown]
  - Device malfunction [Unknown]
  - Device adhesion issue [Unknown]
